FAERS Safety Report 21499272 (Version 3)
Quarter: 2023Q1

REPORT INFORMATION
  Report Type: Report from Study
  Country: AR (occurrence: AR)
  Receive Date: 20221024
  Receipt Date: 20230209
  Transmission Date: 20230417
  Serious: Yes (Disabling)
  Sender: FDA-Public Use
  Company Number: AR-JNJFOC-20221032466

PATIENT
  Age: 64 Year
  Sex: Female
  Weight: 61 kg

DRUGS (7)
  1. ESKETAMINE [Suspect]
     Active Substance: ESKETAMINE
     Indication: Depression
     Dates: start: 20171018
  2. ESKETAMINE [Suspect]
     Active Substance: ESKETAMINE
     Dates: start: 20180718
  3. ESKETAMINE [Suspect]
     Active Substance: ESKETAMINE
     Dates: start: 20210825
  4. ESKETAMINE [Suspect]
     Active Substance: ESKETAMINE
     Dates: start: 20211229, end: 20220928
  5. SERTRALINE [Concomitant]
     Active Substance: SERTRALINE HYDROCHLORIDE
  6. LORAZEPAM [Concomitant]
     Active Substance: LORAZEPAM
     Indication: Anxiety
     Route: 048
     Dates: start: 20201203
  7. LORAZEPAM [Concomitant]
     Active Substance: LORAZEPAM
     Route: 048
     Dates: start: 20190618, end: 20190618

REACTIONS (1)
  - Psychotic disorder [Recovered/Resolved]

NARRATIVE: CASE EVENT DATE: 20221005
